FAERS Safety Report 8521546-0 (Version None)
Quarter: 2012Q3

REPORT INFORMATION
  Report Type: 
  Country: None (occurrence: None)
  Receive Date: 20120719
  Receipt Date: 20120713
  Transmission Date: 20120928
  Serious: Yes (Hospitalization, Other)
  Sender: FDA-Public Use
  Company Number: PHHY2012BR021003

PATIENT
  Age: 92 Year
  Sex: Female

DRUGS (1)
  1. ZOLEDRONOC ACID [Suspect]
     Indication: OSTEOPOROSIS
     Dosage: 5 MG/100 ML, 1 INJECTION PER YEAR
     Route: 042
     Dates: start: 20120306

REACTIONS (13)
  - CIRCULATORY COLLAPSE [None]
  - HYPOTENSION [None]
  - PRODUCTIVE COUGH [None]
  - ENZYME ABNORMALITY [None]
  - INJECTION SITE ERYTHEMA [None]
  - INFLUENZA [None]
  - HEADACHE [None]
  - PAIN [None]
  - PNEUMONIA [None]
  - INFARCTION [None]
  - SLEEP DISORDER [None]
  - CYANOSIS [None]
  - MALAISE [None]
